FAERS Safety Report 16650639 (Version 1)
Quarter: 2019Q3

REPORT INFORMATION
  Report Type: Report from Study
  Country: US (occurrence: US)
  Receive Date: 20190731
  Receipt Date: 20190731
  Transmission Date: 20191004
  Serious: Yes (Death)
  Sender: FDA-Public Use
  Company Number: US-TAIHO ONCOLOGY  INC-EU-2019-02309

PATIENT
  Sex: Female

DRUGS (7)
  1. XARELTO [Concomitant]
     Active Substance: RIVAROXABAN
     Dosage: NI
  2. OLANZAPINE. [Concomitant]
     Active Substance: OLANZAPINE
     Dosage: NI
  3. FUROSEMIDE. [Concomitant]
     Active Substance: FUROSEMIDE
     Dosage: NI
  4. LONSURF [Suspect]
     Active Substance: TIPIRACIL HYDROCHLORIDE\TRIFLURIDINE
     Indication: CARCINOID TUMOUR
     Dosage: NUMBER OF CYCLES UNKNOWN
     Route: 048
     Dates: start: 20190423, end: 201906
  5. SPIRONOLACTONE. [Concomitant]
     Active Substance: SPIRONOLACTONE
     Dosage: NI
  6. ONDANSETRON [Concomitant]
     Active Substance: ONDANSETRON
     Dosage: NI
  7. SODIUM CHLORIDE TABLETS [Concomitant]

REACTIONS (2)
  - Death [Fatal]
  - Disease progression [Not Recovered/Not Resolved]

NARRATIVE: CASE EVENT DATE: 2019
